FAERS Safety Report 11264651 (Version 1)
Quarter: 2015Q3

REPORT INFORMATION
  Report Type: Spontaneous
  Country: US (occurrence: US)
  Receive Date: 20150713
  Receipt Date: 20150713
  Transmission Date: 20151125
  Serious: No
  Sender: FDA-Public Use
  Company Number: US-PFIZER INC-2015221135

PATIENT
  Age: 67 Year
  Sex: Female

DRUGS (7)
  1. PLAQUENIL SULFATE [Suspect]
     Active Substance: HYDROXYCHLOROQUINE SULFATE
  2. KEFLEX [Suspect]
     Active Substance: CEPHALEXIN
  3. VIOXX [Suspect]
     Active Substance: ROFECOXIB
  4. PIROXICAM. [Suspect]
     Active Substance: PIROXICAM
  5. DICLOFENAC SODIUM. [Suspect]
     Active Substance: DICLOFENAC SODIUM
  6. CEFALEXIN [Suspect]
     Active Substance: CEPHALEXIN
  7. BEXTRA [Suspect]
     Active Substance: VALDECOXIB

REACTIONS (1)
  - Drug hypersensitivity [Unknown]
